FAERS Safety Report 5021575-8 (Version None)
Quarter: 2006Q2

REPORT INFORMATION
  Report Type: 
  Country: None (occurrence: None)
  Receive Date: 20060608
  Receipt Date: 20051212
  Transmission Date: 20061013
  Serious: Yes (Other)
  Sender: FDA-Public Use
  Company Number: BR-ABBOTT-05P-020-0319601-00

PATIENT
  Sex: Female

DRUGS (1)
  1. KALETRA [Suspect]
     Indication: HIV INFECTION
     Dosage: 800/200 MG
     Route: 048
     Dates: start: 20041018, end: 20051212

REACTIONS (1)
  - ABORTION INDUCED [None]
